FAERS Safety Report 20793475 (Version 1)
Quarter: 2022Q2

REPORT INFORMATION
  Report Type: Spontaneous
  Country: US (occurrence: US)
  Receive Date: 20220506
  Receipt Date: 20220506
  Transmission Date: 20220721
  Serious: No
  Sender: FDA-Public Use
  Company Number: US-TAKEDA-2022TUS029547

PATIENT
  Age: 51 Year
  Sex: Female

DRUGS (1)
  1. VYVANSE [Suspect]
     Active Substance: LISDEXAMFETAMINE DIMESYLATE
     Indication: Attention deficit hyperactivity disorder
     Dosage: 30 MILLIGRAM, QD
     Route: 065

REACTIONS (8)
  - Pain [Unknown]
  - Negative thoughts [Unknown]
  - Insomnia [Unknown]
  - Heart rate increased [Unknown]
  - Panic attack [Unknown]
  - Crying [Unknown]
  - Decreased activity [Unknown]
  - Asthenia [Unknown]
